FAERS Safety Report 6912946-0 (Version None)
Quarter: 2010Q3

REPORT INFORMATION
  Report Type: 
  Country: None (occurrence: None)
  Receive Date: 20100806
  Receipt Date: 20090408
  Transmission Date: 20110219
  Serious: No
  Sender: FDA-Public Use
  Company Number: US-PFIZER INC-2009171124

PATIENT
  Age: 82 Year
  Sex: Male

DRUGS (3)
  1. DETROL LA [Suspect]
     Dosage: 4 MG, 2X/DAY
  2. ALL OTHER THERAPEUTIC PRODUCTS [Concomitant]
     Dosage: UNK
  3. INSULIN [Concomitant]
     Dosage: UNK

REACTIONS (3)
  - MEDICATION ERROR [None]
  - VISION BLURRED [None]
  - VISUAL IMPAIRMENT [None]
